FAERS Safety Report 11904181 (Version 2)
Quarter: 2016Q1

REPORT INFORMATION
  Report Type: Report from Study
  Country: CN (occurrence: CN)
  Receive Date: 20160108
  Receipt Date: 20160121
  Transmission Date: 20160526
  Serious: Yes (Hospitalization)
  Sender: FDA-Public Use
  Company Number: CN-ABBVIE-15P-035-1529766-00

PATIENT
  Age: 19 Year
  Sex: Male
  Weight: 32 kg

DRUGS (2)
  1. HUMIRA [Suspect]
     Active Substance: ADALIMUMAB
     Indication: CROHN^S DISEASE
     Route: 058
     Dates: start: 20150909, end: 20151216
  2. HUMIRA [Suspect]
     Active Substance: ADALIMUMAB
     Indication: C-REACTIVE PROTEIN INCREASED

REACTIONS (1)
  - Crohn^s disease [Not Recovered/Not Resolved]

NARRATIVE: CASE EVENT DATE: 20151229
